FAERS Safety Report 12670286 (Version 1)
Quarter: 2016Q3

REPORT INFORMATION
  Report Type: Report from Study
  Country: BR (occurrence: BR)
  Receive Date: 20160821
  Receipt Date: 20160821
  Transmission Date: 20161109
  Serious: Yes (Other)
  Sender: FDA-Public Use
  Company Number: BR-ABBVIE-16K-020-1702595-00

PATIENT
  Sex: Female
  Weight: 57 kg

DRUGS (14)
  1. FLUOXETINE [Concomitant]
     Active Substance: FLUOXETINE HYDROCHLORIDE
     Indication: DEPRESSION
     Route: 048
     Dates: start: 2001
  2. FLUOXETINE [Concomitant]
     Active Substance: FLUOXETINE HYDROCHLORIDE
     Indication: SLEEP DISORDER THERAPY
  3. PRELONE [Concomitant]
     Active Substance: PREDNISOLONE
     Indication: RHEUMATOID ARTHRITIS
     Route: 048
     Dates: start: 1995
  4. PANTOPRAZOLE [Concomitant]
     Active Substance: PANTOPRAZOLE SODIUM
     Indication: PROPHYLAXIS
  5. LEVOID [Concomitant]
     Active Substance: LEVOTHYROXINE
     Indication: THYROID DISORDER
     Route: 048
     Dates: start: 2010
  6. HESPERIDIN [Concomitant]
     Active Substance: HESPERIDIN
     Indication: CARDIOVASCULAR DISORDER
     Route: 048
     Dates: start: 2012
  7. CIMICIFUGA RACEMOSA [Concomitant]
     Indication: MENOPAUSE
     Route: 048
     Dates: start: 2012
  8. DIOSMIN [Concomitant]
     Active Substance: DIOSMIN
     Indication: CARDIOVASCULAR DISORDER
     Route: 048
     Dates: start: 2012
  9. CALCIUM CARBONATE. [Concomitant]
     Active Substance: CALCIUM CARBONATE
     Indication: CALCIUM METABOLISM DISORDER
     Route: 048
     Dates: start: 2001
  10. FLUOXETINE [Concomitant]
     Active Substance: FLUOXETINE HYDROCHLORIDE
     Indication: ANXIETY
  11. GLIFAGE [Concomitant]
     Active Substance: METFORMIN HYDROCHLORIDE
     Indication: DIABETES MELLITUS
     Dosage: XTENDED RELEASE
     Route: 048
     Dates: start: 2014
  12. BEZAFIBRATE [Concomitant]
     Active Substance: BEZAFIBRATE
     Indication: BLOOD TRIGLYCERIDES INCREASED
     Route: 048
     Dates: start: 2013
  13. HUMIRA [Suspect]
     Active Substance: ADALIMUMAB
     Indication: RHEUMATOID ARTHRITIS
     Route: 058
     Dates: start: 20140128
  14. PANTOPRAZOLE [Concomitant]
     Active Substance: PANTOPRAZOLE SODIUM
     Indication: GASTRIC DISORDER
     Route: 048
     Dates: start: 2001

REACTIONS (5)
  - Hypoaesthesia [Recovered/Resolved]
  - Somnolence [Not Recovered/Not Resolved]
  - Sciatic nerve neuropathy [Recovered/Resolved]
  - Bone pain [Recovered/Resolved]
  - Intervertebral disc protrusion [Not Recovered/Not Resolved]

NARRATIVE: CASE EVENT DATE: 2014
